FAERS Safety Report 11512131 (Version 3)
Quarter: 2015Q4

REPORT INFORMATION
  Report Type: Spontaneous
  Country: US (occurrence: US)
  Receive Date: 20150916
  Receipt Date: 20151023
  Transmission Date: 20160304
  Serious: No
  Sender: FDA-Public Use
  Company Number: US-AMGEN-USASP2015094406

PATIENT
  Age: 33 Year
  Sex: Female

DRUGS (2)
  1. ENBREL [Suspect]
     Active Substance: ETANERCEPT
     Indication: RHEUMATOID ARTHRITIS
     Dosage: 50 MG, UNK
     Route: 065
  2. METHOTREXATE [Concomitant]
     Active Substance: METHOTREXATE
     Dosage: UNK

REACTIONS (15)
  - Therapeutic response decreased [Unknown]
  - Mobility decreased [Recovering/Resolving]
  - Emotional disorder [Unknown]
  - Wrong technique in product usage process [Unknown]
  - Drug dose omission [Unknown]
  - Asthenia [Unknown]
  - Malaise [Unknown]
  - Skin disorder [Unknown]
  - Feeling abnormal [Unknown]
  - Joint swelling [Recovering/Resolving]
  - Device issue [Unknown]
  - Frustration [Unknown]
  - Hyperhidrosis [Unknown]
  - Knee deformity [Recovering/Resolving]
  - Pain [Recovering/Resolving]

NARRATIVE: CASE EVENT DATE: 2015
